FAERS Safety Report 17858136 (Version 1)
Quarter: 2020Q2

REPORT INFORMATION
  Report Type: Spontaneous
  Country: CN (occurrence: CN)
  Receive Date: 20200604
  Receipt Date: 20200604
  Transmission Date: 20200714
  Serious: Yes (Other)
  Sender: FDA-Public Use
  Company Number: CN-GLAXOSMITHKLINE-CN2020APC088176

PATIENT
  Age: 49 Year
  Sex: Female

DRUGS (6)
  1. PROPOFOL. [Suspect]
     Active Substance: PROPOFOL
     Indication: ANAESTHESIA
     Dosage: 2 MG/KG
     Route: 042
     Dates: start: 201801
  2. ROCURONIUM BROMIDE. [Suspect]
     Active Substance: ROCURONIUM BROMIDE
     Indication: ANAESTHESIA
     Dosage: 0.6 MG/KG
     Route: 042
     Dates: start: 201801
  3. SEVOFLURANE. [Suspect]
     Active Substance: SEVOFLURANE
     Indication: ANAESTHESIA
     Dosage: UNK
     Route: 042
     Dates: start: 201801
  4. BOTULINUM TOXIN TYPE A [Suspect]
     Active Substance: BOTULINUM TOXIN TYPE A
     Indication: BLEPHAROPLASTY
     Dosage: 300 UNITS
     Route: 030
     Dates: start: 201801
  5. CEFUROXIME SODIUM. [Suspect]
     Active Substance: CEFUROXIME SODIUM
     Indication: PROPHYLAXIS
     Dosage: 1.5 G
     Route: 042
     Dates: start: 201801
  6. REMIFENTANIL HYDROCHLORIDE. [Suspect]
     Active Substance: REMIFENTANIL HYDROCHLORIDE
     Indication: ANAESTHESIA
     Dosage: UNK
     Route: 042
     Dates: start: 201801

REACTIONS (6)
  - Head titubation [Unknown]
  - Aphonia [Recovered/Resolved]
  - Hypocalcaemia [Unknown]
  - Epilepsy [Recovered/Resolved]
  - White blood cell count increased [Unknown]
  - Conversion disorder [Recovered/Resolved]

NARRATIVE: CASE EVENT DATE: 201801
